FAERS Safety Report 21543902 (Version 1)
Quarter: 2022Q4

REPORT INFORMATION
  Report Type: Spontaneous
  Country: CA (occurrence: CA)
  Receive Date: 20221102
  Receipt Date: 20221102
  Transmission Date: 20230113
  Serious: Yes (Other)
  Sender: FDA-Public Use
  Company Number: CA-TEVA-2022-CA-2822144

PATIENT
  Age: 62 Year
  Sex: Male
  Weight: 87 kg

DRUGS (2)
  1. OCTREOTIDE [Suspect]
     Active Substance: OCTREOTIDE
     Indication: Gastrointestinal cancer metastatic
     Route: 051
  2. OCTREOTIDE [Suspect]
     Active Substance: OCTREOTIDE
     Indication: Carcinoid syndrome

REACTIONS (5)
  - Contusion [Recovered/Resolved]
  - Discomfort [Recovered/Resolved]
  - Erythema [Recovered/Resolved]
  - Haematoma [Recovered/Resolved]
  - Swelling [Recovered/Resolved]
